FAERS Safety Report 25720974 (Version 1)
Quarter: 2025Q3

REPORT INFORMATION
  Report Type: Spontaneous
  Country: EU (occurrence: EU)
  Receive Date: 20250825
  Receipt Date: 20250825
  Transmission Date: 20251020
  Serious: Yes (Hospitalization, Other)
  Sender: STRIDES
  Company Number: EU-STRIDES ARCOLAB LIMITED-2025SP010813

PATIENT
  Age: 25 Year
  Sex: Female

DRUGS (7)
  1. PREDNISOLONE [Suspect]
     Active Substance: PREDNISOLONE
     Indication: Insulin autoimmune syndrome
     Route: 065
  2. .ALPHA.-LIPOIC ACID [Suspect]
     Active Substance: .ALPHA.-LIPOIC ACID
     Indication: Prophylaxis
     Route: 065
  3. .ALPHA.-LIPOIC ACID [Suspect]
     Active Substance: .ALPHA.-LIPOIC ACID
     Indication: Abortion spontaneous
  4. .ALPHA.-LIPOIC ACID [Suspect]
     Active Substance: .ALPHA.-LIPOIC ACID
     Indication: Premature delivery
  5. DEXTROSE [Suspect]
     Active Substance: DEXTROSE MONOHYDRATE
     Indication: Hypoglycaemia
     Route: 042
  6. INSULIN ASPART [Suspect]
     Active Substance: INSULIN ASPART
     Indication: Hyperglycaemia
     Route: 065
  7. INSULIN ASPART [Suspect]
     Active Substance: INSULIN ASPART
     Route: 065

REACTIONS (5)
  - Polyhydramnios [None]
  - Rebound effect [Unknown]
  - Hyperglycaemia [None]
  - Maternal exposure during pregnancy [Unknown]
  - Off label use [Unknown]
